FAERS Safety Report 6016943-1 (Version None)
Quarter: 2008Q4

REPORT INFORMATION
  Report Type: 
  Country: None (occurrence: None)
  Receive Date: 20081219
  Receipt Date: 20060301
  Transmission Date: 20090506
  Serious: No
  Sender: FDA-Public Use
  Company Number: TEST00206000742

PATIENT
  Age: 4 Year
  Sex: Male

DRUGS (1)
  1. ANDROGEL [Suspect]
     Indication: ACCIDENTAL EXPOSURE
     Dosage: UNKNOWN DAILY TRANSCUTANEOUS

REACTIONS (1)
  - BLOOD TESTOSTERONE INCREASED [None]
